FAERS Safety Report 14679595 (Version 2)
Quarter: 2018Q2

REPORT INFORMATION
  Report Type: Spontaneous
  Country: BR (occurrence: BR)
  Receive Date: 20180326
  Receipt Date: 20180409
  Transmission Date: 20180711
  Serious: Yes (Other)
  Sender: FDA-Public Use
  Company Number: BR-NOVOPROD-591205

PATIENT
  Sex: Female
  Weight: 70 kg

DRUGS (4)
  1. YAZ [Concomitant]
     Active Substance: DROSPIRENONE\ETHINYL ESTRADIOL
     Indication: CONTRACEPTION
     Route: 065
  2. SAXENDA [Suspect]
     Active Substance: LIRAGLUTIDE
     Indication: BLOOD INSULIN INCREASED
  3. SAXENDA [Suspect]
     Active Substance: LIRAGLUTIDE
     Indication: OVERWEIGHT
     Dosage: 0.6 MG, QD
     Route: 065
     Dates: start: 201704
  4. SAXENDA [Suspect]
     Active Substance: LIRAGLUTIDE
     Indication: BLOOD GLUCOSE INCREASED
     Dosage: 1.8 MG, QD
     Route: 065
     Dates: end: 201712

REACTIONS (2)
  - Nausea [Unknown]
  - Thyroid cancer [Unknown]

NARRATIVE: CASE EVENT DATE: 201803
